FAERS Safety Report 13615701 (Version 1)
Quarter: 2017Q2

REPORT INFORMATION
  Report Type: Spontaneous
  Country: IN (occurrence: IN)
  Receive Date: 20170606
  Receipt Date: 20170606
  Transmission Date: 20170830
  Serious: Yes (Death)
  Sender: FDA-Public Use
  Company Number: IN-PFIZER INC-2017242224

PATIENT
  Age: 53 Year
  Sex: Female

DRUGS (2)
  1. PAN D /03494601/ [Concomitant]
  2. PALBACE [Suspect]
     Active Substance: PALBOCICLIB
     Indication: BREAST CANCER METASTATIC
     Dosage: 125 MG, UNK
     Dates: start: 20170515

REACTIONS (1)
  - Multiple organ dysfunction syndrome [Fatal]
